FAERS Safety Report 24378073 (Version 1)
Quarter: 2024Q3

REPORT INFORMATION
  Report Type: Spontaneous
  Country: CA (occurrence: CA)
  Receive Date: 20240930
  Receipt Date: 20240930
  Transmission Date: 20241017
  Serious: Yes (Life-Threatening, Hospitalization, Disabling, Other)
  Sender: SANDOZ
  Company Number: CA-002147023-NVSC2023CA125767

PATIENT
  Age: 3 Year
  Sex: Female
  Weight: 64 kg

DRUGS (175)
  1. ADALIMUMAB [Suspect]
     Active Substance: ADALIMUMAB
     Indication: Rheumatoid arthritis
     Dosage: UNK
     Route: 059
  2. ADALIMUMAB [Suspect]
     Active Substance: ADALIMUMAB
     Indication: Juvenile idiopathic arthritis
     Dosage: UNK (SOLUTION SUBCUTANEOUS)
     Route: 059
  3. NAPROXEN [Suspect]
     Active Substance: NAPROXEN
     Indication: Juvenile idiopathic arthritis
     Dosage: UNK
     Route: 065
  4. NAPROXEN [Suspect]
     Active Substance: NAPROXEN
     Indication: Rheumatoid arthritis
     Dosage: UNK
     Route: 065
  5. ACTEMRA [Suspect]
     Active Substance: TOCILIZUMAB
     Dosage: 280 MG, QW
     Route: 042
  6. ACTEMRA [Suspect]
     Active Substance: TOCILIZUMAB
     Dosage: 280 MG, QD
     Route: 042
  7. ACTEMRA [Suspect]
     Active Substance: TOCILIZUMAB
     Indication: Juvenile idiopathic arthritis
     Dosage: 280 MG, Q2W
     Route: 042
  8. ACTEMRA [Suspect]
     Active Substance: TOCILIZUMAB
     Indication: Rheumatoid arthritis
     Dosage: 280 MG, Q2W
     Route: 042
  9. ACTEMRA [Suspect]
     Active Substance: TOCILIZUMAB
     Dosage: 280 MG, Q2W
     Route: 042
  10. ACTEMRA [Suspect]
     Active Substance: TOCILIZUMAB
     Indication: Still^s disease
     Dosage: 280 MG, QOD
     Route: 042
  11. ACTEMRA [Suspect]
     Active Substance: TOCILIZUMAB
     Dosage: 280 MG, BIW
     Route: 042
  12. ACTEMRA [Suspect]
     Active Substance: TOCILIZUMAB
     Dosage: 280 MG, BID
     Route: 041
  13. ACTEMRA [Suspect]
     Active Substance: TOCILIZUMAB
     Dosage: 280 MG
     Route: 041
  14. ACTEMRA [Suspect]
     Active Substance: TOCILIZUMAB
     Dosage: 280 MG
     Route: 042
  15. ACTEMRA [Suspect]
     Active Substance: TOCILIZUMAB
     Dosage: 280 MG, Q2W (1 EVERY 1 WEEKS)
     Route: 065
  16. ACTEMRA [Suspect]
     Active Substance: TOCILIZUMAB
     Dosage: 280 MG, QD 2 EVERY 1
     Route: 065
  17. ACTEMRA [Suspect]
     Active Substance: TOCILIZUMAB
     Dosage: 280 MG, CYCLIC
     Route: 042
  18. ACTEMRA [Suspect]
     Active Substance: TOCILIZUMAB
     Dosage: UNK
     Route: 065
  19. ANAKINRA [Suspect]
     Active Substance: ANAKINRA
     Dosage: 1 DOSAGE FORM, QD
     Route: 058
  20. ANAKINRA [Suspect]
     Active Substance: ANAKINRA
     Indication: Juvenile idiopathic arthritis
     Dosage: 50 MG, QD
     Route: 058
  21. ANAKINRA [Suspect]
     Active Substance: ANAKINRA
     Dosage: 50 MG, QD
     Route: 058
  22. ANAKINRA [Suspect]
     Active Substance: ANAKINRA
     Dosage: 50 MG, QD
     Route: 058
  23. ANAKINRA [Suspect]
     Active Substance: ANAKINRA
     Dosage: 50 MG, QD
     Route: 059
  24. ANAKINRA [Suspect]
     Active Substance: ANAKINRA
     Dosage: 50 MG, QD
     Route: 065
  25. ANAKINRA [Suspect]
     Active Substance: ANAKINRA
     Indication: Rheumatoid arthritis
     Dosage: 50 MG, QW
     Route: 065
  26. ANAKINRA [Suspect]
     Active Substance: ANAKINRA
     Dosage: UNK UNK, QD
     Route: 058
  27. ANAKINRA [Suspect]
     Active Substance: ANAKINRA
     Dosage: UNK
     Route: 065
  28. ANAKINRA [Suspect]
     Active Substance: ANAKINRA
     Dosage: UNK
     Route: 065
  29. TRIAMCINOLONE ACETONIDE [Suspect]
     Active Substance: TRIAMCINOLONE ACETONIDE
     Indication: Rheumatoid arthritis
     Dosage: UNK (SPRAY, METERED DOSE)
     Route: 065
  30. PREDNISONE [Suspect]
     Active Substance: PREDNISONE
     Indication: Rheumatoid arthritis
     Dosage: 5 MG, BID
     Route: 048
  31. PREDNISONE [Suspect]
     Active Substance: PREDNISONE
     Dosage: 1.3 MG, BID (2 EVERY 1 DAYS)
     Route: 048
  32. PREDNISONE [Suspect]
     Active Substance: PREDNISONE
     Dosage: 50 MG
     Route: 048
  33. PREDNISONE [Suspect]
     Active Substance: PREDNISONE
     Indication: Juvenile idiopathic arthritis
     Dosage: 3 MG, BID
     Route: 048
  34. PREDNISONE [Suspect]
     Active Substance: PREDNISONE
     Dosage: UNK
     Route: 065
  35. ERELZI [Suspect]
     Active Substance: ETANERCEPT-SZZS
     Indication: Rheumatoid arthritis
     Dosage: 12.5 MG, QW
     Route: 058
  36. ERELZI [Suspect]
     Active Substance: ETANERCEPT-SZZS
     Dosage: 25 MG, BIW
     Route: 058
  37. ERELZI [Suspect]
     Active Substance: ETANERCEPT-SZZS
     Dosage: 25 MG
     Route: 058
  38. ERELZI [Suspect]
     Active Substance: ETANERCEPT-SZZS
     Dosage: UNK
     Route: 058
  39. ERELZI [Suspect]
     Active Substance: ETANERCEPT-SZZS
     Dosage: UNK
     Route: 058
  40. ERELZI [Suspect]
     Active Substance: ETANERCEPT-SZZS
     Dosage: UNK(25 (1 EVERY 2)
     Route: 058
  41. ETANERCEPT [Suspect]
     Active Substance: ETANERCEPT
     Dosage: 1.5 MG, QW
     Route: 065
  42. ETANERCEPT [Suspect]
     Active Substance: ETANERCEPT
     Dosage: 12.5 MG, QD
     Route: 058
  43. ETANERCEPT [Suspect]
     Active Substance: ETANERCEPT
     Dosage: 12.5 MG
     Route: 058
  44. ETANERCEPT [Suspect]
     Active Substance: ETANERCEPT
     Dosage: 12.5 MG (4 EVERY 1 WEEK)
     Route: 058
  45. ETANERCEPT [Suspect]
     Active Substance: ETANERCEPT
     Dosage: 12.5 MG CYCLICAL
     Route: 058
  46. ETANERCEPT [Suspect]
     Active Substance: ETANERCEPT
     Dosage: 12.5 MG, QW
     Route: 058
  47. ETANERCEPT [Suspect]
     Active Substance: ETANERCEPT
     Dosage: 12.5 MG, QW
     Route: 058
  48. ETANERCEPT [Suspect]
     Active Substance: ETANERCEPT
     Dosage: 12.5 MG, QW
     Route: 065
  49. ETANERCEPT [Suspect]
     Active Substance: ETANERCEPT
     Indication: Rheumatoid arthritis
     Dosage: 25 MG, BIW
     Route: 058
  50. ETANERCEPT [Suspect]
     Active Substance: ETANERCEPT
     Dosage: 25 MG
     Route: 058
  51. ETANERCEPT [Suspect]
     Active Substance: ETANERCEPT
     Dosage: 25 MG
     Route: 058
  52. ETANERCEPT [Suspect]
     Active Substance: ETANERCEPT
     Dosage: 25 MG
     Route: 065
  53. ETANERCEPT [Suspect]
     Active Substance: ETANERCEPT
     Dosage: 25 MG (1 EVERY 2)
     Route: 058
  54. ETANERCEPT [Suspect]
     Active Substance: ETANERCEPT
     Dosage: 25 MG (2 EVERY 1, 4 MONTHS)
     Route: 065
  55. ETANERCEPT [Suspect]
     Active Substance: ETANERCEPT
     Dosage: 25 MG CYCLICAL
     Route: 058
  56. ETANERCEPT [Suspect]
     Active Substance: ETANERCEPT
     Dosage: 25 MG, CYCLIC
     Route: 058
  57. ETANERCEPT [Suspect]
     Active Substance: ETANERCEPT
     Dosage: 25 MG, QW
     Route: 058
  58. ETANERCEPT [Suspect]
     Active Substance: ETANERCEPT
     Indication: Juvenile idiopathic arthritis
     Dosage: 4 DOSAGE FORM, QW
     Route: 058
  59. ETANERCEPT [Suspect]
     Active Substance: ETANERCEPT
     Dosage: 25 MG, BID
     Route: 058
  60. ETANERCEPT [Suspect]
     Active Substance: ETANERCEPT
     Dosage: 50 MG, QW
     Route: 058
  61. ETANERCEPT [Suspect]
     Active Substance: ETANERCEPT
     Dosage: 50 MG, QW
     Route: 058
  62. ETANERCEPT [Suspect]
     Active Substance: ETANERCEPT
     Dosage: UNK
     Route: 065
  63. GAMASTAN [Suspect]
     Active Substance: HUMAN IMMUNOGLOBULIN G
     Indication: Juvenile idiopathic arthritis
     Dosage: 70 MG
     Route: 030
  64. GAMASTAN [Suspect]
     Active Substance: HUMAN IMMUNOGLOBULIN G
     Dosage: UNK
     Route: 030
  65. HUMIRA [Suspect]
     Active Substance: ADALIMUMAB
     Indication: Rheumatoid arthritis
     Route: 065
  66. HUMIRA [Suspect]
     Active Substance: ADALIMUMAB
     Indication: Rheumatoid arthritis
     Route: 065
  67. HUMIRA [Suspect]
     Active Substance: ADALIMUMAB
     Indication: Juvenile idiopathic arthritis
  68. HYDROXYCHLOROQUINE SULFATE [Suspect]
     Active Substance: HYDROXYCHLOROQUINE SULFATE
     Dosage: 1 DOSAGE FORM, QD
     Route: 048
  69. HYDROXYCHLOROQUINE SULFATE [Suspect]
     Active Substance: HYDROXYCHLOROQUINE SULFATE
     Indication: Rheumatoid arthritis
     Dosage: 5 MG, QD
     Route: 048
  70. HYDROXYCHLOROQUINE SULFATE [Suspect]
     Active Substance: HYDROXYCHLOROQUINE SULFATE
     Dosage: 5 MG, QD
     Route: 048
  71. HYDROXYCHLOROQUINE SULFATE [Suspect]
     Active Substance: HYDROXYCHLOROQUINE SULFATE
     Dosage: 5 MG/KG, QD
     Route: 048
  72. HYDROXYCHLOROQUINE SULFATE [Suspect]
     Active Substance: HYDROXYCHLOROQUINE SULFATE
     Dosage: 5 MG/KG, QD
     Route: 048
  73. HYDROXYCHLOROQUINE SULFATE [Suspect]
     Active Substance: HYDROXYCHLOROQUINE SULFATE
     Indication: Juvenile idiopathic arthritis
     Dosage: 5 DOSAGE FORM, QD
     Route: 048
  74. HYDROXYCHLOROQUINE SULFATE [Suspect]
     Active Substance: HYDROXYCHLOROQUINE SULFATE
     Dosage: UNK, QD
     Route: 048
  75. HYDROXYCHLOROQUINE SULFATE [Suspect]
     Active Substance: HYDROXYCHLOROQUINE SULFATE
     Dosage: UNK
     Route: 065
  76. INFLIXIMAB [Suspect]
     Active Substance: INFLIXIMAB
     Dosage: 1 DF
     Route: 042
  77. INFLIXIMAB [Suspect]
     Active Substance: INFLIXIMAB
     Dosage: 3 MG, QW
     Route: 042
  78. INFLIXIMAB [Suspect]
     Active Substance: INFLIXIMAB
     Dosage: 3 MG, QW
     Route: 065
  79. INFLIXIMAB [Suspect]
     Active Substance: INFLIXIMAB
     Dosage: 3 MG, QW
     Route: 065
  80. INFLIXIMAB [Suspect]
     Active Substance: INFLIXIMAB
     Dosage: 3 MG
     Route: 041
  81. INFLIXIMAB [Suspect]
     Active Substance: INFLIXIMAB
     Dosage: 3 MG
     Route: 042
  82. INFLIXIMAB [Suspect]
     Active Substance: INFLIXIMAB
     Dosage: 3 MG, QW
     Route: 042
  83. INFLIXIMAB [Suspect]
     Active Substance: INFLIXIMAB
     Dosage: 3 MG, QW
     Route: 042
  84. INFLIXIMAB [Suspect]
     Active Substance: INFLIXIMAB
     Dosage: 3 MG, QW
     Route: 065
  85. INFLIXIMAB [Suspect]
     Active Substance: INFLIXIMAB
     Dosage: 3 MG/KG, QW
     Route: 042
  86. INFLIXIMAB [Suspect]
     Active Substance: INFLIXIMAB
     Dosage: 3 MG/KG
     Route: 042
  87. INFLIXIMAB [Suspect]
     Active Substance: INFLIXIMAB
     Indication: Juvenile idiopathic arthritis
     Dosage: 3 MG/KG, (1 EVERY 6 WEEKS)
     Route: 042
  88. INFLIXIMAB [Suspect]
     Active Substance: INFLIXIMAB
     Dosage: 3 MG/KG, QW
     Route: 041
  89. INFLIXIMAB [Suspect]
     Active Substance: INFLIXIMAB
     Dosage: 5 MG, QD
     Route: 041
  90. INFLIXIMAB [Suspect]
     Active Substance: INFLIXIMAB
     Indication: Rheumatoid arthritis
     Dosage: 5 MG
     Route: 042
  91. INFLIXIMAB [Suspect]
     Active Substance: INFLIXIMAB
     Dosage: 5 MG
     Route: 042
  92. INFLIXIMAB [Suspect]
     Active Substance: INFLIXIMAB
     Dosage: 5 MG
     Route: 042
  93. INFLIXIMAB [Suspect]
     Active Substance: INFLIXIMAB
     Dosage: 5 MG
     Route: 065
  94. INFLIXIMAB [Suspect]
     Active Substance: INFLIXIMAB
     Dosage: 5 MG
     Route: 065
  95. INFLIXIMAB [Suspect]
     Active Substance: INFLIXIMAB
     Dosage: UNK
     Route: 065
  96. HUMAN IMMUNOGLOBULIN G [Suspect]
     Active Substance: HUMAN IMMUNOGLOBULIN G
     Indication: Juvenile idiopathic arthritis
     Dosage: 3 MG/KG, QW
     Route: 042
  97. HUMAN IMMUNOGLOBULIN G [Suspect]
     Active Substance: HUMAN IMMUNOGLOBULIN G
     Dosage: 70 G
     Route: 042
  98. HUMAN IMMUNOGLOBULIN G [Suspect]
     Active Substance: HUMAN IMMUNOGLOBULIN G
     Dosage: 70 G
     Route: 042
  99. HUMAN IMMUNOGLOBULIN G [Suspect]
     Active Substance: HUMAN IMMUNOGLOBULIN G
     Dosage: 70 G
     Route: 042
  100. HUMAN IMMUNOGLOBULIN G [Suspect]
     Active Substance: HUMAN IMMUNOGLOBULIN G
     Indication: Rheumatoid arthritis
     Dosage: 70 MG
     Route: 042
  101. HUMAN IMMUNOGLOBULIN G [Suspect]
     Active Substance: HUMAN IMMUNOGLOBULIN G
     Dosage: 70 MG
     Route: 042
  102. HUMAN IMMUNOGLOBULIN G [Suspect]
     Active Substance: HUMAN IMMUNOGLOBULIN G
     Dosage: UNK
     Route: 065
  103. HUMAN IMMUNOGLOBULIN G [Suspect]
     Active Substance: HUMAN IMMUNOGLOBULIN G
     Dosage: UNK
     Route: 065
  104. HUMAN IMMUNOGLOBULIN G [Suspect]
     Active Substance: HUMAN IMMUNOGLOBULIN G
     Dosage: UNK
     Route: 065
  105. METHOTREXATE [Suspect]
     Active Substance: METHOTREXATE
     Dosage: 1 DF, QW
     Route: 058
  106. METHOTREXATE [Suspect]
     Active Substance: METHOTREXATE
     Dosage: 15 MG, QW
     Route: 058
  107. METHOTREXATE [Suspect]
     Active Substance: METHOTREXATE
     Dosage: 15 MG 1 EVERY 2
     Route: 058
  108. METHOTREXATE [Suspect]
     Active Substance: METHOTREXATE
     Dosage: 15 MG, QW
     Route: 058
  109. METHOTREXATE [Suspect]
     Active Substance: METHOTREXATE
     Indication: Rheumatoid arthritis
     Dosage: 15 MG/M2, QW
     Route: 058
  110. METHOTREXATE [Suspect]
     Active Substance: METHOTREXATE
     Dosage: 15 MG/M2, QW
     Route: 058
  111. METHOTREXATE [Suspect]
     Active Substance: METHOTREXATE
     Dosage: 15 MG/M2, QW
     Route: 058
  112. METHOTREXATE [Suspect]
     Active Substance: METHOTREXATE
     Dosage: 15 MG/M2, QW
     Route: 058
  113. METHOTREXATE [Suspect]
     Active Substance: METHOTREXATE
     Dosage: 1 DOSAGE FORM, QW
     Route: 058
  114. METHOTREXATE [Suspect]
     Active Substance: METHOTREXATE
     Indication: Juvenile idiopathic arthritis
     Dosage: 15 MG/M2
     Route: 058
  115. METHOTREXATE [Suspect]
     Active Substance: METHOTREXATE
     Dosage: UNK
     Route: 037
  116. METHOTREXATE [Suspect]
     Active Substance: METHOTREXATE
     Dosage: UNK
     Route: 065
  117. METHOTREXATE [Suspect]
     Active Substance: METHOTREXATE
     Dosage: UNK
     Route: 065
  118. NAPROXEN SODIUM [Suspect]
     Active Substance: NAPROXEN\NAPROXEN SODIUM
     Indication: Juvenile idiopathic arthritis
     Dosage: UNK
     Route: 065
  119. NAPROXEN SODIUM [Suspect]
     Active Substance: NAPROXEN\NAPROXEN SODIUM
     Indication: Rheumatoid arthritis
     Dosage: UNK
     Route: 065
  120. ORENCIA [Suspect]
     Active Substance: ABATACEPT
     Dosage: 1 DOSAGE FORM, QMO
     Route: 041
  121. ORENCIA [Suspect]
     Active Substance: ABATACEPT
     Dosage: 250 MG
     Route: 041
  122. ORENCIA [Suspect]
     Active Substance: ABATACEPT
     Indication: Juvenile idiopathic arthritis
     Dosage: 250 MG
     Route: 065
  123. ORENCIA [Suspect]
     Active Substance: ABATACEPT
     Dosage: 250 MG, QMO
     Route: 041
  124. ORENCIA [Suspect]
     Active Substance: ABATACEPT
     Dosage: 250 MG, QMO
     Route: 041
  125. ORENCIA [Suspect]
     Active Substance: ABATACEPT
     Dosage: 250 MG, QMO
     Route: 041
  126. ORENCIA [Suspect]
     Active Substance: ABATACEPT
     Dosage: 250 MG, QMO
     Route: 041
  127. ORENCIA [Suspect]
     Active Substance: ABATACEPT
     Dosage: 250 MG, QMO
     Route: 041
  128. ORENCIA [Suspect]
     Active Substance: ABATACEPT
     Dosage: 250 MG, QMO
     Route: 041
  129. ORENCIA [Suspect]
     Active Substance: ABATACEPT
     Dosage: 250 MG, QMO
     Route: 055
  130. ORENCIA [Suspect]
     Active Substance: ABATACEPT
     Dosage: 250 MG, QMO
     Route: 065
  131. ORENCIA [Suspect]
     Active Substance: ABATACEPT
     Dosage: 250 MG, QMO
     Route: 065
  132. ORENCIA [Suspect]
     Active Substance: ABATACEPT
     Indication: Rheumatoid arthritis
     Dosage: 250 MG, QMO ROUTE OF ADMIN (FREE TEXT): INTRAVENOUS DRIP
     Route: 065
  133. ORENCIA [Suspect]
     Active Substance: ABATACEPT
     Dosage: UNK
     Route: 041
  134. ORENCIA [Suspect]
     Active Substance: ABATACEPT
     Dosage: UNK
     Route: 065
  135. ORENCIA [Suspect]
     Active Substance: ABATACEPT
     Dosage: UNK, QMO
     Route: 041
  136. PREDNISONE [Suspect]
     Active Substance: PREDNISONE
     Dosage: 1.3 MG, BID
     Route: 048
  137. PREDNISONE [Suspect]
     Active Substance: PREDNISONE
     Dosage: 10 MG, QD
     Route: 048
  138. PREDNISONE [Suspect]
     Active Substance: PREDNISONE
     Dosage: 10 MG, QD
     Route: 048
  139. PREDNISONE [Suspect]
     Active Substance: PREDNISONE
     Dosage: 2 DF, QD
     Route: 048
  140. PREDNISONE [Suspect]
     Active Substance: PREDNISONE
     Dosage: 3 MG, QD
     Route: 048
  141. PREDNISONE [Suspect]
     Active Substance: PREDNISONE
     Indication: Rheumatoid arthritis
     Dosage: 3 MG, BID
     Route: 048
  142. PREDNISONE [Suspect]
     Active Substance: PREDNISONE
     Dosage: 5 MG, BID
     Route: 048
  143. PREDNISONE [Suspect]
     Active Substance: PREDNISONE
     Dosage: 5 MG, QD
     Route: 048
  144. PREDNISONE [Suspect]
     Active Substance: PREDNISONE
     Dosage: 5 MG, BIW
     Route: 048
  145. PREDNISONE [Suspect]
     Active Substance: PREDNISONE
     Indication: Juvenile idiopathic arthritis
     Dosage: 5 MG, BID
     Route: 048
  146. PREDNISONE [Suspect]
     Active Substance: PREDNISONE
     Dosage: 5 MG, BID
     Route: 048
  147. PREDNISONE [Suspect]
     Active Substance: PREDNISONE
     Dosage: 5 MG, BID
     Route: 048
  148. PREDNISONE [Suspect]
     Active Substance: PREDNISONE
     Dosage: 50 MG, QD
     Route: 048
  149. PREDNISONE [Suspect]
     Active Substance: PREDNISONE
     Dosage: UNK
     Route: 065
  150. SULFASALAZINE [Suspect]
     Active Substance: SULFASALAZINE
     Dosage: 1 DOSAGE FORM, QD
     Route: 048
  151. SULFASALAZINE [Suspect]
     Active Substance: SULFASALAZINE
     Indication: Rheumatoid arthritis
     Dosage: 250 MG, QD
     Route: 048
  152. SULFASALAZINE [Suspect]
     Active Substance: SULFASALAZINE
     Indication: Juvenile idiopathic arthritis
     Dosage: 250 MG, QD
     Route: 065
  153. SULFASALAZINE [Suspect]
     Active Substance: SULFASALAZINE
     Dosage: UNK
     Route: 065
  154. TOCILIZUMAB [Suspect]
     Active Substance: TOCILIZUMAB
     Indication: Rheumatoid arthritis
     Dosage: 280 MG, BIW
     Route: 042
  155. TOCILIZUMAB [Suspect]
     Active Substance: TOCILIZUMAB
     Dosage: 280 MG, BIW (2 EVERY 1 WEEK)
     Route: 042
  156. TOCILIZUMAB [Suspect]
     Active Substance: TOCILIZUMAB
     Indication: Juvenile idiopathic arthritis
     Dosage: 280 MG
     Route: 042
  157. TOCILIZUMAB [Suspect]
     Active Substance: TOCILIZUMAB
     Dosage: 280 MG, CYCLIC
     Route: 042
  158. TOCILIZUMAB [Suspect]
     Active Substance: TOCILIZUMAB
     Dosage: 280 MG, QW (1 EVERY 1 WEEK)
     Route: 042
  159. TRIAMCINOLONE [Suspect]
     Active Substance: TRIAMCINOLONE
     Dosage: 5 MG, QD
     Route: 065
  160. TRIAMCINOLONE [Suspect]
     Active Substance: TRIAMCINOLONE
     Indication: Juvenile idiopathic arthritis
     Dosage: UNK
     Route: 065
  161. TRIAMCINOLONE [Suspect]
     Active Substance: TRIAMCINOLONE
     Indication: Product used for unknown indication
     Dosage: UNK
     Route: 065
  162. TRIAMCINOLONE [Suspect]
     Active Substance: TRIAMCINOLONE
     Indication: Rheumatoid arthritis
     Dosage: UNK
     Route: 065
  163. TRIAMCINOLONE [Suspect]
     Active Substance: TRIAMCINOLONE
     Dosage: UNK
     Route: 065
  164. TRIAMCINOLONE [Suspect]
     Active Substance: TRIAMCINOLONE
     Dosage: UNK
     Route: 065
  165. TRIAMCINOLONE [Suspect]
     Active Substance: TRIAMCINOLONE
     Dosage: UNK
     Route: 065
  166. TRIAMCINOLONE [Suspect]
     Active Substance: TRIAMCINOLONE
     Dosage: UNK
     Route: 065
  167. TRIAMCINOLONE [Suspect]
     Active Substance: TRIAMCINOLONE
     Dosage: UNK
     Route: 065
  168. TRIAMCINOLONE [Suspect]
     Active Substance: TRIAMCINOLONE
     Dosage: UNK
     Route: 065
  169. TRIAMCINOLONE ACETONIDE [Suspect]
     Active Substance: TRIAMCINOLONE ACETONIDE
     Indication: Rheumatoid arthritis
     Dosage: 25 MG, Q2W
     Route: 058
  170. TRIAMCINOLONE ACETONIDE [Suspect]
     Active Substance: TRIAMCINOLONE ACETONIDE
     Indication: Rhinitis allergic
     Dosage: 25 MG, CYCLIC
     Route: 058
  171. TRIAMCINOLONE ACETONIDE [Suspect]
     Active Substance: TRIAMCINOLONE ACETONIDE
     Indication: Juvenile idiopathic arthritis
     Dosage: UNK
     Route: 050
  172. TRIAMCINOLONE ACETONIDE [Suspect]
     Active Substance: TRIAMCINOLONE ACETONIDE
     Indication: Seasonal allergy
     Dosage: UNK
     Route: 050
  173. XELJANZ [Suspect]
     Active Substance: TOFACITINIB CITRATE
     Indication: Rheumatoid arthritis
     Dosage: 11 MG, QD
     Route: 065
  174. ARISTOCORT [Concomitant]
     Active Substance: TRIAMCINOLONE DIACETATE
     Indication: Juvenile idiopathic arthritis
     Dosage: UNK
     Route: 050
  175. FOLIC ACID [Concomitant]
     Active Substance: FOLIC ACID
     Indication: Product used for unknown indication
     Dosage: UNK
     Route: 065

REACTIONS (3)
  - Arthritis [Not Recovered/Not Resolved]
  - Condition aggravated [Not Recovered/Not Resolved]
  - Off label use [Not Recovered/Not Resolved]
